FAERS Safety Report 6070567-9 (Version None)
Quarter: 2009Q1

REPORT INFORMATION
  Report Type: 
  Country: None (occurrence: None)
  Receive Date: 20090209
  Receipt Date: 20090202
  Transmission Date: 20090719
  Serious: Yes (Other)
  Sender: FDA-Public Use
  Company Number: AT-JNJFOC-20090200181

PATIENT
  Age: 70 Year
  Sex: Male

DRUGS (11)
  1. HALDOL [Suspect]
     Indication: SCHIZOAFFECTIVE DISORDER
     Route: 065
  2. SEROQUEL [Suspect]
     Route: 065
  3. SEROQUEL [Suspect]
     Route: 065
  4. SEROQUEL [Suspect]
     Indication: DRUG USE FOR UNKNOWN INDICATION
     Route: 065
  5. NOZINAN [Suspect]
     Route: 065
  6. NOZINAN [Suspect]
     Route: 065
  7. NOZINAN [Suspect]
     Route: 065
  8. NOZINAN [Suspect]
     Indication: DRUG USE FOR UNKNOWN INDICATION
     Route: 065
  9. TEMESTA [Concomitant]
     Route: 065
  10. TEMESTA [Concomitant]
     Route: 065
  11. TEMESTA [Concomitant]
     Route: 065

REACTIONS (2)
  - HYPERLIPIDAEMIA [None]
  - WEIGHT INCREASED [None]
